FAERS Safety Report 24671025 (Version 1)
Quarter: 2024Q4

REPORT INFORMATION
  Report Type: Spontaneous
  Country: CN (occurrence: CN)
  Receive Date: 20241127
  Receipt Date: 20241127
  Transmission Date: 20250114
  Serious: Yes (Hospitalization)
  Sender: EISAI
  Company Number: CN-Eisai-EC-2024-179257

PATIENT
  Age: 63 Year
  Sex: Female
  Weight: 60 kg

DRUGS (1)
  1. LENVATINIB [Suspect]
     Active Substance: LENVATINIB
     Indication: Ovarian cancer metastatic
     Route: 048
     Dates: start: 20241020, end: 20241030

REACTIONS (1)
  - Protein urine present [Recovering/Resolving]

NARRATIVE: CASE EVENT DATE: 20241110
